FAERS Safety Report 5170816-5 (Version None)
Quarter: 2006Q4

REPORT INFORMATION
  Report Type: 
  Country: None (occurrence: None)
  Receive Date: 20061205
  Receipt Date: 20061205
  Transmission Date: 20070319
  Serious: No
  Sender: FDA-Public Use
  Company Number: None

PATIENT
  Sex: Male
  Weight: 122.4712 kg

DRUGS (1)
  1. COLD EEZE LOZENGE CHERRY AND HONEY QUIGLEY [Suspect]
     Indication: NASOPHARYNGITIS
     Dosage: 1 LOZENGE 5 DAILY FOR 3 DAYS PO
     Route: 048
     Dates: start: 20061127, end: 20061201

REACTIONS (2)
  - AGEUSIA [None]
  - ANOSMIA [None]
